FAERS Safety Report 12549736 (Version 1)
Quarter: 2016Q3

REPORT INFORMATION
  Report Type: Spontaneous
  Country: US (occurrence: US)
  Receive Date: 20160712
  Receipt Date: 20160712
  Transmission Date: 20161109
  Serious: Yes (Other)
  Sender: FDA-Public Use
  Company Number: US-BAYER-2016-133579

PATIENT
  Age: 89 Year
  Sex: Female
  Weight: 63.49 kg

DRUGS (2)
  1. MIRALAX [Suspect]
     Active Substance: POLYETHYLENE GLYCOL 3350
     Indication: BOWEL MOVEMENT IRREGULARITY
     Dosage: UNK
     Dates: start: 2015
  2. MIRALAX [Suspect]
     Active Substance: POLYETHYLENE GLYCOL 3350
     Indication: BOWEL MOVEMENT IRREGULARITY
     Dosage: 1 DF, QD
     Route: 048
     Dates: start: 201606, end: 20160706

REACTIONS (4)
  - Faeces soft [Not Recovered/Not Resolved]
  - Product use issue [None]
  - Neoplasm [None]
  - Product use issue [None]

NARRATIVE: CASE EVENT DATE: 201606
